FAERS Safety Report 8500650-7 (Version None)
Quarter: 2012Q2

REPORT INFORMATION
  Report Type: 
  Country: None (occurrence: None)
  Receive Date: 20120405
  Receipt Date: 20100203
  Transmission Date: 20120825
  Serious: Yes (Hospitalization, Other)
  Sender: FDA-Public Use
  Company Number: PHEH2008US11784

PATIENT
  Age: 73 Year
  Sex: Female
  Weight: 47 kg

DRUGS (4)
  1. ALPRAZOLAM [Concomitant]
  2. PREVACID [Concomitant]
  3. RECLAST [Suspect]
     Indication: OSTEOPOROSIS
     Dosage: 5 MG, ONE TIME , INTRAVENOUS
     Route: 042
     Dates: start: 20071203, end: 20071207
  4. METOCLOPRAMIDE [Concomitant]

REACTIONS (7)
  - ATRIAL FIBRILLATION [None]
  - BUNDLE BRANCH BLOCK RIGHT [None]
  - PALPITATIONS [None]
  - DILATATION ATRIAL [None]
  - EXTRASYSTOLES [None]
  - CARDIOVERSION [None]
  - DIZZINESS [None]
